FAERS Safety Report 20924266 (Version 1)
Quarter: 2022Q2

REPORT INFORMATION
  Report Type: Spontaneous
  Country: JP (occurrence: JP)
  Receive Date: 20220607
  Receipt Date: 20220607
  Transmission Date: 20220721
  Serious: No
  Sender: FDA-Public Use
  Company Number: JP-GLAXOSMITHKLINE-JP2022JPN087351

PATIENT

DRUGS (11)
  1. SOTROVIMAB [Suspect]
     Active Substance: SOTROVIMAB
     Indication: COVID-19
     Dosage: 500 MG, QD
     Route: 042
     Dates: start: 20220430, end: 20220430
  2. AMALUET NO.3 [Concomitant]
     Dosage: UNK
     Route: 048
  3. CLOPIDOGREL BISULFATE [Concomitant]
     Active Substance: CLOPIDOGREL BISULFATE
     Dosage: UNK
     Route: 048
  4. OLMESARTAN OD TABLETS [Concomitant]
     Dosage: UNK
     Route: 048
  5. NEXIUM [Concomitant]
     Active Substance: ESOMEPRAZOLE MAGNESIUM
     Dosage: UNK
     Route: 048
  6. ALESION OPHTHALMIC SOLUTION 0.05% [Concomitant]
     Dosage: UNK
     Route: 047
  7. CALONAL [Concomitant]
     Active Substance: ACETAMINOPHEN
     Dosage: UNK
     Route: 048
     Dates: start: 20220430, end: 20220430
  8. TRANEXAMIC ACID [Concomitant]
     Active Substance: TRANEXAMIC ACID
     Dosage: UNK
     Route: 048
  9. CARBOCYSTEINE [Concomitant]
     Active Substance: CARBOCYSTEINE
     Dosage: UNK
     Route: 048
  10. HUSTAZOL SUGAR-COATED TABLETS (CLOPERASTINE HYDROCHLORIDE) [Concomitant]
     Dosage: UNK
     Route: 048
  11. LUNESTA TABLETS [Concomitant]
     Dosage: UNK
     Route: 048
     Dates: start: 20220430, end: 20220506

REACTIONS (5)
  - Face oedema [Recovering/Resolving]
  - Eyelid oedema [Recovering/Resolving]
  - Eyelid pain [Unknown]
  - Facial pain [Unknown]
  - Neck pain [Unknown]

NARRATIVE: CASE EVENT DATE: 20220501
